FAERS Safety Report 9944886 (Version 1)
Quarter: 2014Q1

REPORT INFORMATION
  Report Type: Report from Study
  Country: US (occurrence: US)
  Receive Date: 20140303
  Receipt Date: 20140303
  Transmission Date: 20141002
  Serious: No
  Sender: FDA-Public Use
  Company Number: US-ABBVIE-13P-163-1052286-00

PATIENT
  Age: 33 Year
  Sex: Female

DRUGS (2)
  1. HUMIRA [Suspect]
     Dates: start: 20130201, end: 20130201
  2. HUMIRA [Suspect]
     Dates: start: 20130215

REACTIONS (3)
  - Device malfunction [Not Recovered/Not Resolved]
  - Device malfunction [Not Recovered/Not Resolved]
  - Injection site pain [Unknown]
